FAERS Safety Report 17282182 (Version 1)
Quarter: 2020Q1

REPORT INFORMATION
  Report Type: Spontaneous
  Country: US (occurrence: US)
  Receive Date: 20200117
  Receipt Date: 20200117
  Transmission Date: 20200409
  Serious: Yes (Other)
  Sender: FDA-Public Use
  Company Number: US-TEVA-2020-US-1170035

PATIENT
  Sex: Female

DRUGS (4)
  1. BUSPIRONE HYDROCHLORIDE TABLETS [Suspect]
     Active Substance: BUSPIRONE HYDROCHLORIDE
     Route: 065
  2. RISPERIDONE. [Suspect]
     Active Substance: RISPERIDONE
     Route: 065
  3. CLONAZEPAM. [Suspect]
     Active Substance: CLONAZEPAM
     Route: 065
  4. BUPROPION HYDROCHLORIDE EXTENDED-RELEASE TABLETS [Suspect]
     Active Substance: BUPROPION HYDROCHLORIDE
     Route: 065

REACTIONS (13)
  - Balance disorder [Unknown]
  - Tremor [Unknown]
  - Hypopnoea [Unknown]
  - Tardive dyskinesia [Not Recovered/Not Resolved]
  - Muscle spasms [Not Recovered/Not Resolved]
  - Paraesthesia [Unknown]
  - Fine motor skill dysfunction [Unknown]
  - Gait disturbance [Unknown]
  - Dysphemia [Unknown]
  - Motor dysfunction [Unknown]
  - Hypoaesthesia [Unknown]
  - Head titubation [Unknown]
  - Tongue disorder [Unknown]

NARRATIVE: CASE EVENT DATE: 2018
